FAERS Safety Report 4620244-3 (Version None)
Quarter: 2005Q1

REPORT INFORMATION
  Report Type: 
  Country: None (occurrence: None)
  Receive Date: 20050322
  Receipt Date: 20050322
  Transmission Date: 20050727
  Serious: No
  Sender: FDA-Public Use
  Company Number: None

PATIENT
  Age: 9 Month
  Sex: Male
  Weight: 8.1647 kg

DRUGS (1)
  1. SYNAGIS [Suspect]
     Indication: PREMATURE BABY
     Dosage: MONTHLY INTRAMUSCU
     Route: 030
     Dates: start: 20041110, end: 20050310

REACTIONS (1)
  - URTICARIA GENERALISED [None]
